FAERS Safety Report 9503257 (Version 1)
Quarter: 2013Q1

REPORT INFORMATION
  Report Type: Spontaneous
  Country: US (occurrence: None)
  Receive Date: 20130107
  Receipt Date: 20130107
  Transmission Date: 20140127
  Serious: No
  Sender: FDA-Public Use
  Company Number: PHEH2012US017732

PATIENT
  Age: 50 Year
  Sex: Female
  Weight: 95.7 kg

DRUGS (8)
  1. GILENYA [Suspect]
     Indication: RELAPSING-REMITTING MULTIPLE SCLEROSIS
     Route: 048
     Dates: start: 20110620
  2. BENICAR HCT [Concomitant]
  3. CYMBALTA [Concomitant]
  4. GLUCOSAMINE/CHONDROITIN/MSM [Concomitant]
  5. MODAFINIL [Concomitant]
  6. MULTIVITAMINS [Concomitant]
  7. TOPIRAMATE [Concomitant]
  8. VESICARE [Concomitant]

REACTIONS (1)
  - Pyrexia [None]
